FAERS Safety Report 15085286 (Version 1)
Quarter: 2018Q2

REPORT INFORMATION
  Report Type: Report from Study
  Country: US (occurrence: US)
  Receive Date: 20180628
  Receipt Date: 20180628
  Transmission Date: 20180711
  Serious: Yes (Other)
  Sender: FDA-Public Use
  Company Number: US-SHIRE-US201822559

PATIENT
  Sex: Female

DRUGS (1)
  1. HUMAN NORMAL IMMUNOGLOBULIN; LIQUID 20 [Suspect]
     Active Substance: HUMAN IMMUNOGLOBULIN G
     Indication: PRIMARY IMMUNODEFICIENCY SYNDROME
     Dosage: 24 G, 1X/2WKS
     Route: 065
     Dates: start: 20180223

REACTIONS (4)
  - Sinusitis [Unknown]
  - Escherichia infection [Unknown]
  - Urinary tract infection [Unknown]
  - Gastroenteritis viral [Unknown]
